FAERS Safety Report 9079667 (Version 1)
Quarter: 2013Q1

REPORT INFORMATION
  Report Type: Spontaneous
  Country: US (occurrence: US)
  Receive Date: 20130130
  Receipt Date: 20130130
  Transmission Date: 20140127
  Serious: Yes (Other)
  Sender: FDA-Public Use
  Company Number: US-ELI_LILLY_AND_COMPANY-US201212002209

PATIENT
  Age: 71 Year
  Sex: Male

DRUGS (3)
  1. HUMALOG LISPRO [Suspect]
     Indication: TYPE 2 DIABETES MELLITUS
     Dosage: UNK, PRN
  2. HUMALOG 25% LISPRO, 75% NPL [Suspect]
     Indication: TYPE 2 DIABETES MELLITUS
     Dosage: UNK
  3. LANTUS [Concomitant]

REACTIONS (7)
  - Cerebral small vessel ischaemic disease [Not Recovered/Not Resolved]
  - Dementia [Not Recovered/Not Resolved]
  - Tremor [Unknown]
  - Blood glucose decreased [Unknown]
  - Blood glucose increased [Unknown]
  - Neck pain [Unknown]
  - Hyperhidrosis [Unknown]
